FAERS Safety Report 7494746-9 (Version None)
Quarter: 2011Q2

REPORT INFORMATION
  Report Type: 
  Country: None (occurrence: None)
  Receive Date: 20110520
  Receipt Date: 20110513
  Transmission Date: 20111010
  Serious: Yes (Other)
  Sender: FDA-Public Use
  Company Number: NL-ABBOTT-11P-114-0726614-00

PATIENT
  Sex: Female
  Weight: 80 kg

DRUGS (4)
  1. CALCIUM CARBONATE/COLECALCIFEROL/BRUISGRAN [Concomitant]
     Indication: VITAMIN SUPPLEMENTATION
     Dosage: 1 UNIT DAILY
     Route: 048
  2. OMEPRAZOLE [Concomitant]
     Indication: ANKYLOSING SPONDYLITIS
     Dosage: 1 UNIT DAILY
     Dates: start: 20060101
  3. HUMIRA [Suspect]
     Indication: ANKYLOSING SPONDYLITIS
     Route: 058
     Dates: start: 20090323
  4. NAPROXEN [Concomitant]
     Indication: ANKYLOSING SPONDYLITIS
     Dosage: 1 UNIT DAILY
     Route: 048
     Dates: start: 20060101

REACTIONS (11)
  - PERIODONTITIS [None]
  - MUSCULAR WEAKNESS [None]
  - FATIGUE [None]
  - LIVER FUNCTION TEST ABNORMAL [None]
  - MELANOCYTIC NAEVUS [None]
  - MOVEMENT DISORDER [None]
  - TENDON PAIN [None]
  - PARAESTHESIA [None]
  - DISTURBANCE IN ATTENTION [None]
  - DIZZINESS [None]
  - DEPRESSION [None]
